FAERS Safety Report 20485528 (Version 1)
Quarter: 2022Q1

REPORT INFORMATION
  Report Type: Spontaneous
  Country: US (occurrence: None)
  Receive Date: 20220217
  Receipt Date: 20220217
  Transmission Date: 20220423
  Serious: Yes (unspecified)
  Sender: FDA-Public Use
  Company Number: None

PATIENT
  Age: 41 Year
  Sex: Female
  Weight: 75.4 kg

DRUGS (3)
  1. PACLITAXEL [Suspect]
     Active Substance: PACLITAXEL
     Indication: Breast cancer female
     Dosage: OTHER FREQUENCY : ONE TIME INFUSION;?
     Route: 041
     Dates: start: 20220216, end: 20220216
  2. Hydrocortisone 100 mg IVP [Concomitant]
     Dates: start: 20220216, end: 20220216
  3. Diphenhydramine 25 mg IVP [Concomitant]
     Dates: start: 20220216, end: 20220216

REACTIONS (12)
  - Flushing [None]
  - Nausea [None]
  - Swelling face [None]
  - Mouth swelling [None]
  - Erythema [None]
  - Infusion related reaction [None]
  - Muscle spasms [None]
  - Dry throat [None]
  - Throat irritation [None]
  - Heart rate increased [None]
  - Blood pressure increased [None]
  - Thrombocytopenia [None]

NARRATIVE: CASE EVENT DATE: 20220216
